FAERS Safety Report 24756894 (Version 1)
Quarter: 2024Q4

REPORT INFORMATION
  Report Type: Spontaneous
  Country: US (occurrence: US)
  Receive Date: 20241220
  Receipt Date: 20241220
  Transmission Date: 20250115
  Serious: Yes (Life-Threatening, Hospitalization)
  Sender: LUPIN
  Company Number: US-LUPIN PHARMACEUTICALS INC.-2024-12152

PATIENT
  Sex: Female
  Weight: 2.7 kg

DRUGS (7)
  1. PROPRANOLOL HYDROCHLORIDE [Suspect]
     Active Substance: PROPRANOLOL HYDROCHLORIDE
     Indication: Arrhythmia
     Dosage: UNK
     Route: 065
  2. ATENOLOL [Suspect]
     Active Substance: ATENOLOL
     Indication: Arrhythmia
     Dosage: UNK
     Route: 065
  3. MEXILETINE [Suspect]
     Active Substance: MEXILETINE
     Indication: Arrhythmia
     Dosage: 1.5 MILLIGRAM/KILOGRAM
     Route: 065
  4. MEXILETINE [Suspect]
     Active Substance: MEXILETINE
     Dosage: 4 MILLIGRAM/KILOGRAM
     Route: 065
  5. FLECAINIDE [Suspect]
     Active Substance: FLECAINIDE
     Indication: Arrhythmia
     Dosage: UNK
     Route: 065
  6. NADOLOL [Suspect]
     Active Substance: NADOLOL
     Indication: Arrhythmia
     Dosage: 0.5 MILLIGRAM/KILOGRAM
     Route: 065
  7. LIDOCAINE [Concomitant]
     Active Substance: LIDOCAINE
     Indication: Arrhythmia
     Dosage: UNK, INFUSION
     Route: 065

REACTIONS (2)
  - Drug ineffective for unapproved indication [Unknown]
  - Off label use [Unknown]
